FAERS Safety Report 8911352 (Version 3)
Quarter: 2014Q4

REPORT INFORMATION
  Report Type: Spontaneous
  Country: US (occurrence: US)
  Receive Date: 20121116
  Receipt Date: 20141217
  Transmission Date: 20150529
  Serious: No
  Sender: FDA-Public Use
  Company Number: US-GLAXOSMITHKLINE-A0998079A

PATIENT

DRUGS (6)
  1. VOTRIENT [Suspect]
     Active Substance: PAZOPANIB HYDROCHLORIDE
     Indication: PANCREATIC CARCINOMA
  2. UNSPECIFIED TREATMENT [Suspect]
     Active Substance: UNSPECIFIED INGREDIENT
     Dosage: SUN EXPOSUREUNKNOWN
     Route: 065
  3. VOTRIENT [Suspect]
     Active Substance: PAZOPANIB HYDROCHLORIDE
     Indication: RENAL CANCER
  4. CRESTOR [Concomitant]
     Active Substance: ROSUVASTATIN CALCIUM
  5. VOTRIENT [Suspect]
     Active Substance: PAZOPANIB HYDROCHLORIDE
     Indication: RENAL CANCER
     Dosage: 200 MG TABLETS TAKE 3 TABLETS OR 600 MG ONCE A DAYUNKNOWN
     Route: 048
  6. ASPIRIN. [Suspect]
     Active Substance: ASPIRIN
     Indication: PRODUCT USED FOR UNKNOWN INDICATION
     Dosage: UNKNOWN
     Route: 065

REACTIONS (10)
  - Surgery [Unknown]
  - Muscle spasms [Unknown]
  - Fatigue [Unknown]
  - Back pain [Unknown]
  - Ill-defined disorder [Unknown]
  - Dysphagia [Unknown]
  - Increased tendency to bruise [Unknown]
  - Blood pressure increased [Recovering/Resolving]
  - Gait disturbance [Unknown]
  - Blood calcium decreased [Unknown]

NARRATIVE: CASE EVENT DATE: 20121004
